FAERS Safety Report 8181230-2 (Version None)
Quarter: 2012Q1

REPORT INFORMATION
  Report Type: 
  Country: None (occurrence: None)
  Receive Date: 20120302
  Receipt Date: 20120222
  Transmission Date: 20120608
  Serious: Yes (Hospitalization, Other)
  Sender: FDA-Public Use
  Company Number: US-AMGEN-USASP2012008735

PATIENT
  Age: 78 Year
  Sex: Female
  Weight: 68 kg

DRUGS (28)
  1. PARICALCITOL [Concomitant]
     Dosage: 2 MUG, 3 TIMES/WK
     Route: 042
     Dates: start: 20110413
  2. METOCLOPRAMIDE [Concomitant]
     Indication: NAUSEA
     Dosage: 5 MG, PRN
     Route: 042
     Dates: start: 20111202
  3. METOPROLOL SUCCINATE [Concomitant]
     Indication: ATRIAL FIBRILLATION
     Dosage: 100 MG, BID
     Route: 048
     Dates: start: 20120128
  4. DOCUSATE SODIUM [Concomitant]
     Dosage: 250 MG, PRN
  5. EPOGEN [Suspect]
     Dosage: 15000 IU, 3 TIMES/WK
     Route: 042
  6. METOPROLOL SUCCINATE [Concomitant]
     Dosage: 50 MG, BID
  7. PROTONIX [Concomitant]
     Dosage: 40 MG, QD
     Route: 048
  8. PROTONIX [Concomitant]
     Dosage: 40 MG, QHS
     Route: 048
  9. EPOGEN [Suspect]
     Dosage: 4000 IU, UNK
     Dates: end: 20110901
  10. COUMADIN [Concomitant]
     Dosage: 3 MG, QHS
     Dates: start: 20100212
  11. METOPROLOL SUCCINATE [Concomitant]
     Dosage: 150 MG, BID
  12. FERROUS SULFATE TAB [Concomitant]
     Dosage: 500 MG, BID
  13. EPOGEN [Suspect]
     Dosage: 10000 IU, UNK
     Dates: start: 20111001, end: 20111001
  14. METOCLOPRAMIDE [Concomitant]
     Indication: VOMITING
  15. LIDOCAINE [Concomitant]
     Dosage: 0.5 ML, PRN
     Route: 023
     Dates: start: 20111202
  16. COUMADIN [Concomitant]
     Indication: ATRIAL FIBRILLATION
     Dosage: 2 MG, QHS
     Route: 048
  17. DIPHENHYDRAMINE HCL [Concomitant]
     Indication: PRURITUS
     Dosage: 25 MG, PRN
     Route: 042
     Dates: start: 20111202
  18. OMEPRAZOLE [Concomitant]
     Dosage: 40 MG, QD
     Route: 048
     Dates: start: 20120201
  19. PROTONIX [Concomitant]
     Dosage: 40 MG, BID
     Route: 042
  20. RENAGEL [Concomitant]
     Dosage: 2400 MG, TID
     Route: 048
     Dates: start: 20081122
  21. IMODIUM [Concomitant]
     Indication: DIARRHOEA
     Dosage: UNK UNK, PRN
     Route: 048
     Dates: start: 20111202
  22. NITROGLYCERIN [Concomitant]
     Indication: CHEST PAIN
     Dosage: 0.4 MG, PRN
     Route: 060
     Dates: start: 20111202
  23. ACETAMINOPHEN [Concomitant]
     Indication: PAIN
     Dosage: 650 MG, PRN
     Route: 048
     Dates: start: 20111202
  24. METOPROLOL SUCCINATE [Concomitant]
     Indication: HYPERTENSION
     Dosage: 75 MG, BID
     Route: 048
  25. EPOGEN [Suspect]
     Indication: NEPHROGENIC ANAEMIA
     Dosage: 15000 IU, QMO
     Dates: start: 20070101, end: 20120220
  26. ACETAMINOPHEN [Concomitant]
     Indication: PYREXIA
  27. DOCUSATE SODIUM [Concomitant]
     Dosage: 100 MG, QD
     Route: 048
     Dates: start: 20120201
  28. LOSARTAN POTASSIUM [Concomitant]
     Dosage: 50 MG, BID
     Route: 048

REACTIONS (18)
  - ANAEMIA MACROCYTIC [None]
  - MELAENA [None]
  - GASTROINTESTINAL HAEMORRHAGE [None]
  - PLEURAL EFFUSION [None]
  - CHEST PAIN [None]
  - THYMOMA [None]
  - ATRIAL FIBRILLATION [None]
  - LIPOMA [None]
  - THERAPEUTIC RESPONSE DECREASED [None]
  - CEREBROVASCULAR ACCIDENT [None]
  - HYPERTENSION [None]
  - FATIGUE [None]
  - NORMOCHROMIC NORMOCYTIC ANAEMIA [None]
  - COLON ADENOMA [None]
  - GASTROINTESTINAL ARTERIOVENOUS MALFORMATION [None]
  - ABDOMINAL PAIN UPPER [None]
  - BACK PAIN [None]
  - APLASIA PURE RED CELL [None]
